FAERS Safety Report 13585665 (Version 3)
Quarter: 2017Q3

REPORT INFORMATION
  Report Type: Spontaneous
  Country: RU (occurrence: RU)
  Receive Date: 20170526
  Receipt Date: 20170809
  Transmission Date: 20171127
  Serious: Yes (Death, Hospitalization, Other)
  Sender: FDA-Public Use
  Company Number: RU-ALEXION PHARMACEUTICALS INC-A201705615

PATIENT
  Age: 27 Year
  Sex: Male
  Weight: 65 kg

DRUGS (1)
  1. SOLIRIS [Suspect]
     Active Substance: ECULIZUMAB
     Indication: HAEMOLYTIC URAEMIC SYNDROME
     Dosage: 900 MG, UNK
     Route: 042
     Dates: start: 20170407, end: 20170414

REACTIONS (19)
  - Multiple organ dysfunction syndrome [Unknown]
  - Pneumonia [Unknown]
  - Skin haemorrhage [Unknown]
  - Septic shock [Fatal]
  - Renal papillary necrosis [Unknown]
  - Encephalomalacia [Unknown]
  - Ecchymosis [Unknown]
  - Pulmonary oedema [Unknown]
  - Drug resistance [Unknown]
  - Brain oedema [Unknown]
  - Acute kidney injury [Fatal]
  - Haemorrhagic disorder [Unknown]
  - Septic embolus [Unknown]
  - Hepatorenal failure [Unknown]
  - Colitis ulcerative [Unknown]
  - Haemolysis [Unknown]
  - Cerebral disorder [Unknown]
  - Altered state of consciousness [Unknown]
  - Bone marrow disorder [Unknown]

NARRATIVE: CASE EVENT DATE: 20170323
